FAERS Safety Report 7870371-2 (Version None)
Quarter: 2011Q4

REPORT INFORMATION
  Report Type: 
  Country: None (occurrence: None)
  Receive Date: 20111029
  Receipt Date: 20110308
  Transmission Date: 20120403
  Serious: No
  Sender: FDA-Public Use
  Company Number: US-AMGEN-USASP2011012967

PATIENT
  Sex: Female

DRUGS (1)
  1. ENBREL [Suspect]
     Indication: PSORIASIS
     Dosage: 50 MG, QWK
     Dates: start: 20110201

REACTIONS (5)
  - WOUND HAEMORRHAGE [None]
  - SKIN DISCOLOURATION [None]
  - ERYTHEMA [None]
  - SKIN FISSURES [None]
  - DRY SKIN [None]
